FAERS Safety Report 23234496 (Version 1)
Quarter: 2023Q4

REPORT INFORMATION
  Report Type: Spontaneous
  Country: FR (occurrence: FR)
  Receive Date: 20231128
  Receipt Date: 20231128
  Transmission Date: 20240110
  Serious: Yes (Hospitalization, Disabling, Other)
  Sender: FDA-Public Use
  Company Number: FR-ABBVIE-5478556

PATIENT
  Age: 66 Year
  Sex: Female
  Weight: 117 kg

DRUGS (2)
  1. RINVOQ [Suspect]
     Active Substance: UPADACITINIB
     Indication: Rheumatoid arthritis
     Route: 048
     Dates: start: 20210122, end: 20231031
  2. GLICLAZIDE [Concomitant]
     Active Substance: GLICLAZIDE
     Indication: Product used for unknown indication

REACTIONS (3)
  - Cerebrovascular accident [Recovered/Resolved with Sequelae]
  - Hemiparesis [Unknown]
  - Paralysis [Unknown]

NARRATIVE: CASE EVENT DATE: 20230101
